FAERS Safety Report 13475272 (Version 2)
Quarter: 2017Q2

REPORT INFORMATION
  Report Type: Spontaneous
  Country: JP (occurrence: JP)
  Receive Date: 20170424
  Receipt Date: 20170524
  Transmission Date: 20170830
  Serious: Yes (Other)
  Sender: FDA-Public Use
  Company Number: PHJP2017JP013524

PATIENT
  Age: 75 Year
  Sex: Female
  Weight: 36 kg

DRUGS (2)
  1. NEORAL [Suspect]
     Active Substance: CYCLOSPORINE
     Dosage: 100 MG PER DAY, TWICE A DAY, UNK
     Route: 048
     Dates: start: 2016
  2. NEORAL [Suspect]
     Active Substance: CYCLOSPORINE
     Indication: APLASIA PURE RED CELL
     Dosage: 25 MG, UNK
     Route: 048

REACTIONS (3)
  - Myelopathy [Unknown]
  - Product use in unapproved indication [Unknown]
  - Cardiac disorder [Unknown]
